FAERS Safety Report 6447558-9 (Version None)
Quarter: 2009Q4

REPORT INFORMATION
  Report Type: 
  Country: None (occurrence: None)
  Receive Date: 20091119
  Receipt Date: 20090507
  Transmission Date: 20100525
  Serious: Yes (Other)
  Sender: FDA-Public Use
  Company Number: US-AMGEN-COG346105

PATIENT
  Sex: Female

DRUGS (2)
  1. ENBREL [Suspect]
     Indication: RHEUMATOID ARTHRITIS
     Route: 058
     Dates: start: 20080327
  2. ARAVA [Concomitant]

REACTIONS (10)
  - ABDOMINAL DISCOMFORT [None]
  - DIZZINESS [None]
  - FATIGUE [None]
  - NODULE [None]
  - PAIN [None]
  - PARAESTHESIA [None]
  - PLATELET COUNT DECREASED [None]
  - SWELLING [None]
  - VASCULITIS [None]
  - WEIGHT DECREASED [None]
